FAERS Safety Report 15711196 (Version 1)
Quarter: 2018Q4

REPORT INFORMATION
  Report Type: Spontaneous
  Country: PT (occurrence: DE)
  Receive Date: 20181211
  Receipt Date: 20181211
  Transmission Date: 20190205
  Serious: Yes (Other)
  Sender: FDA-Public Use
  Company Number: PT-SUNOVION-2018SUN004821

PATIENT

DRUGS (11)
  1. ZEBINIX [Suspect]
     Active Substance: ESLICARBAZEPINE ACETATE
     Dosage: 1200 MG, QD (EVENING DOSE)
     Route: 048
  2. LAMOTRIGIN [Concomitant]
     Active Substance: LAMOTRIGINE
     Dosage: 600 MG, QD
  3. CLOBAZAM. [Concomitant]
     Active Substance: CLOBAZAM
     Dosage: 5 MG, QD
  4. ZEBINIX [Suspect]
     Active Substance: ESLICARBAZEPINE ACETATE
     Indication: EPILEPSY
     Dosage: 400 MG, UNK
     Route: 065
  5. LAMOTRIGIN [Concomitant]
     Active Substance: LAMOTRIGINE
     Dosage: 400 MG, QD
  6. ZEBINIX [Suspect]
     Active Substance: ESLICARBAZEPINE ACETATE
     Dosage: 800 MG, UNK
     Route: 048
  7. LAMOTRIGIN [Concomitant]
     Active Substance: LAMOTRIGINE
     Indication: EPILEPSY
     Dosage: 400 MG, QD
  8. RETIGABINA [Concomitant]
     Indication: EPILEPSY
     Dosage: 600 MG, QD
  9. ZEBINIX [Suspect]
     Active Substance: ESLICARBAZEPINE ACETATE
     Dosage: 1600 MG, QD
     Route: 048
  10. CLOBAZAM. [Concomitant]
     Active Substance: CLOBAZAM
     Indication: EPILEPSY
     Dosage: 15 MG, QD
  11. FELBAMATE. [Concomitant]
     Active Substance: FELBAMATE
     Indication: EPILEPSY
     Dosage: 2400 MG, QD

REACTIONS (8)
  - Weight decreased [Unknown]
  - Overdose [Unknown]
  - Impulse-control disorder [Unknown]
  - Drug ineffective [Unknown]
  - Restlessness [Unknown]
  - Seizure [Unknown]
  - Appetite disorder [Unknown]
  - Aggression [Unknown]
